FAERS Safety Report 15090177 (Version 1)
Quarter: 2018Q2

REPORT INFORMATION
  Report Type: Report from Study
  Country: JP (occurrence: JP)
  Receive Date: 20180629
  Receipt Date: 20180629
  Transmission Date: 20180711
  Serious: Yes (Death)
  Sender: FDA-Public Use
  Company Number: JP-ACTELION-A-CH2018-174426

PATIENT
  Age: 39 Year
  Sex: Female
  Weight: 43.3 kg

DRUGS (11)
  1. OXYGEN. [Concomitant]
     Active Substance: OXYGEN
  2. BAKTAR [Concomitant]
     Active Substance: SULFAMETHOXAZOLE\TRIMETHOPRIM
  3. OPSUMIT [Suspect]
     Active Substance: MACITENTAN
     Indication: PULMONARY ARTERIAL HYPERTENSION
     Dosage: 10 MG, OD
     Route: 048
     Dates: start: 20170420, end: 20180112
  4. BAYASPIRIN [Suspect]
     Active Substance: ASPIRIN
     Indication: CEREBRAL INFARCTION
     Dosage: 100 MG, QD
     Route: 048
     Dates: start: 20110422, end: 20180112
  5. ADALAT [Concomitant]
     Active Substance: NIFEDIPINE
  6. PREDONINE [Concomitant]
     Active Substance: PREDNISOLONE
  7. PARIET [Concomitant]
     Active Substance: RABEPRAZOLE SODIUM
  8. ADCIRCA [Suspect]
     Active Substance: TADALAFIL
     Indication: PULMONARY ARTERIAL HYPERTENSION
     Dosage: 20 MG, QD
     Route: 048
     Dates: start: 20130801, end: 20180112
  9. MYSLEE [Concomitant]
     Active Substance: ZOLPIDEM TARTRATE
  10. AMLODIPINE [Concomitant]
     Active Substance: AMLODIPINE BESYLATE
  11. BONOTEO [Concomitant]
     Active Substance: MINODRONIC ACID

REACTIONS (7)
  - Blood pressure decreased [Fatal]
  - Depressed level of consciousness [Fatal]
  - Migraine [Fatal]
  - Bradycardia [Fatal]
  - Cough [Fatal]
  - Aphasia [Fatal]
  - Cerebral haemorrhage [Fatal]

NARRATIVE: CASE EVENT DATE: 20180112
